FAERS Safety Report 24014954 (Version 3)
Quarter: 2024Q4

REPORT INFORMATION
  Report Type: Report from Study
  Country: CN (occurrence: CN)
  Receive Date: 20240626
  Receipt Date: 20241223
  Transmission Date: 20250115
  Serious: Yes (Death, Other)
  Sender: ROCHE
  Company Number: CN-ROCHE-3569287

PATIENT
  Age: 79 Year
  Sex: Female

DRUGS (4)
  1. POLATUZUMAB VEDOTIN [Suspect]
     Active Substance: POLATUZUMAB VEDOTIN
     Indication: Diffuse large B-cell lymphoma
     Dosage: ON 02/FEB/2024, RECEIVED MOST RECENT DOSE POLATUZUMAB 60 MG
     Route: 041
     Dates: start: 20240202
  2. RITUXIMAB [Suspect]
     Active Substance: RITUXIMAB
     Indication: Diffuse large B-cell lymphoma
     Route: 065
  3. LENALIDOMIDE [Suspect]
     Active Substance: LENALIDOMIDE
     Indication: Diffuse large B-cell lymphoma
     Route: 065
  4. ZANUBRUTINIB [Suspect]
     Active Substance: ZANUBRUTINIB
     Indication: Diffuse large B-cell lymphoma
     Route: 065

REACTIONS (7)
  - White blood cell count decreased [Recovered/Resolved]
  - Neutrophil count decreased [Not Recovered/Not Resolved]
  - Lymphocyte count decreased [Recovered/Resolved]
  - Anaemia [Not Recovered/Not Resolved]
  - Hypokalaemia [Not Recovered/Not Resolved]
  - Hypomagnesaemia [Not Recovered/Not Resolved]
  - Multiple organ dysfunction syndrome [Fatal]

NARRATIVE: CASE EVENT DATE: 20240205
